FAERS Safety Report 21406823 (Version 1)
Quarter: 2022Q4

REPORT INFORMATION
  Report Type: Spontaneous
  Country: FR (occurrence: FR)
  Receive Date: 20221004
  Receipt Date: 20221004
  Transmission Date: 20230113
  Serious: Yes (Life-Threatening)
  Sender: FDA-Public Use
  Company Number: FR-SUN PHARMACEUTICAL INDUSTRIES LTD-2022RR-356835

PATIENT
  Age: 86 Year
  Sex: Female
  Weight: 51.8 kg

DRUGS (1)
  1. MORPHINE [Suspect]
     Active Substance: MORPHINE
     Indication: Pain management
     Dosage: 5 MILLIGRAM, Q1H
     Route: 040

REACTIONS (5)
  - Oxygen saturation decreased [Recovering/Resolving]
  - Product administration error [Recovering/Resolving]
  - Incorrect dose administered [Recovering/Resolving]
  - Miosis [Recovering/Resolving]
  - Somnolence [Recovering/Resolving]

NARRATIVE: CASE EVENT DATE: 20220616
